FAERS Safety Report 9399046 (Version 1)
Quarter: 2013Q3

REPORT INFORMATION
  Report Type: Report from Study
  Country: US (occurrence: US)
  Receive Date: 20130715
  Receipt Date: 20130715
  Transmission Date: 20140515
  Serious: Yes (Other)
  Sender: FDA-Public Use
  Company Number: US-ROCHE-1248321

PATIENT
  Sex: 0

DRUGS (3)
  1. RIBAVIRIN [Suspect]
     Indication: HEPATITIS C
     Route: 065
  2. PEG-INTERFERON ALFA 2A [Suspect]
     Indication: HEPATITIS C
     Route: 065
  3. SOFOSBUVIR [Suspect]
     Indication: HEPATITIS C
     Route: 048

REACTIONS (1)
  - Peripheral ischaemia [Recovered/Resolved]
